FAERS Safety Report 4829359-8 (Version None)
Quarter: 2005Q4

REPORT INFORMATION
  Report Type: 
  Country: None (occurrence: None)
  Receive Date: 20051028
  Receipt Date: 20050823
  Transmission Date: 20060501
  Serious: No
  Sender: FDA-Public Use
  Company Number: COT_0199_2005

PATIENT
  Age: 55 Year
  Sex: Male
  Weight: 56.2 kg

DRUGS (5)
  1. VENTAVIS [Suspect]
     Indication: PULMONARY HYPERTENSION
     Dosage: 5 MCG 4 X DAY IH
     Route: 055
     Dates: start: 20050613
  2. LASIX [Concomitant]
  3. PREVACID [Concomitant]
  4. COLACE [Concomitant]
  5. OXYGEN [Concomitant]

REACTIONS (5)
  - GLOSSODYNIA [None]
  - LYMPHADENOPATHY [None]
  - PHARYNGEAL OEDEMA [None]
  - PHARYNGOLARYNGEAL PAIN [None]
  - TONGUE DISCOLOURATION [None]
